FAERS Safety Report 7374762-8 (Version None)
Quarter: 2011Q1

REPORT INFORMATION
  Report Type: 
  Country: None (occurrence: None)
  Receive Date: 20110325
  Receipt Date: 20101115
  Transmission Date: 20110831
  Serious: No
  Sender: FDA-Public Use
  Company Number: US-MYLANLABS-2010S1019408

PATIENT
  Age: 58 Year
  Sex: Female

DRUGS (16)
  1. FENTANYL-100 [Suspect]
     Indication: PAIN
     Dosage: CHANGED Q72H
     Route: 062
     Dates: start: 20090801
  2. ALPRAZOLAM [Concomitant]
  3. ACETAMINOPHEN AND HYDROCODONE BITARTRATE [Concomitant]
     Dosage: 10MG/325MG TABS
  4. FELODIPINE [Concomitant]
  5. ASKINA DERM FILM DRESSING [Suspect]
     Dosage: Q72HR
     Route: 062
     Dates: start: 20100901
  6. AMITRIPTYLINE [Concomitant]
  7. HYDROXYCHLOROQUINE SULFATE [Concomitant]
  8. METHOTREXATE [Concomitant]
  9. HYDROXYZINE HYDROCHLORIDE [Concomitant]
  10. LISINOPRIL [Concomitant]
  11. FLUOCINONIDE [Concomitant]
  12. FENTANYL-100 [Suspect]
     Indication: SYSTEMIC LUPUS ERYTHEMATOSUS
     Dosage: CHANGED Q72H
     Route: 062
     Dates: start: 20090801
  13. CYCLOBENZAPRINE [Concomitant]
  14. CYMBALTA [Concomitant]
  15. PREMARIN [Concomitant]
  16. OMEPRAZOLE [Concomitant]

REACTIONS (5)
  - PRURITUS [None]
  - APPLICATION SITE URTICARIA [None]
  - APPLICATION SITE ERYTHEMA [None]
  - URTICARIA [None]
  - APPLICATION SITE PRURITUS [None]
